FAERS Safety Report 19479947 (Version 1)
Quarter: 2021Q2

REPORT INFORMATION
  Report Type: Spontaneous
  Country: BR (occurrence: BR)
  Receive Date: 20210630
  Receipt Date: 20210630
  Transmission Date: 20210717
  Serious: Yes (Death, Other)
  Sender: FDA-Public Use
  Company Number: BR-SA-2021SA214090

PATIENT
  Age: 4 Month
  Sex: Male
  Weight: 1.06 kg

DRUGS (1)
  1. CLEXANE [Suspect]
     Active Substance: ENOXAPARIN SODIUM
     Route: 065

REACTIONS (3)
  - Premature baby [Unknown]
  - Death [Fatal]
  - Foetal exposure during pregnancy [Unknown]
